FAERS Safety Report 5351702-4 (Version None)
Quarter: 2007Q2

REPORT INFORMATION
  Report Type: 
  Country: None (occurrence: None)
  Receive Date: 20070518
  Receipt Date: 20070219
  Transmission Date: 20071010
  Serious: No
  Sender: FDA-Public Use
  Company Number: TPA2007A00425

PATIENT
  Age: 50 Year
  Sex: Female
  Weight: 65.7716 kg

DRUGS (7)
  1. ROZEREM [Suspect]
     Indication: INSOMNIA
     Dosage: 8 MG, QHS, PER ORAL
     Route: 048
     Dates: start: 20070122, end: 20070201
  2. EFFEXOR [Concomitant]
  3. VYTORIN [Concomitant]
  4. OGEN [Concomitant]
  5. NEXIUM [Concomitant]
  6. SYNTHROID [Concomitant]
  7. NASONEX (MOMETASONE FUROATE) (NASAL DROPS (INCLUDING NASAL SPRAY)) [Concomitant]

REACTIONS (1)
  - FATIGUE [None]
